FAERS Safety Report 22127402 (Version 1)
Quarter: 2023Q1

REPORT INFORMATION
  Report Type: Spontaneous
  Country: US (occurrence: US)
  Receive Date: 20230322
  Receipt Date: 20230322
  Transmission Date: 20230417
  Serious: No
  Sender: FDA-Public Use
  Company Number: US-AMGEN-USASP2023042281

PATIENT
  Age: 70 Year
  Sex: Male

DRUGS (3)
  1. REPATHA [Suspect]
     Active Substance: EVOLOCUMAB
     Indication: Blood cholesterol increased
     Dosage: 140 MILLIGRAM, Q2WK
     Route: 058
     Dates: start: 20230227, end: 20230306
  2. INSULIN NOS [Concomitant]
     Active Substance: INSULIN NOS
     Indication: Diabetes mellitus
  3. OXYCODONE HYDROCHLORIDE [Concomitant]
     Active Substance: OXYCODONE HYDROCHLORIDE
     Indication: Pain

REACTIONS (13)
  - Burning sensation [Unknown]
  - Joint swelling [Unknown]
  - Peripheral swelling [Unknown]
  - Quality of life decreased [Unknown]
  - Body temperature increased [Recovered/Resolved]
  - Scab [Unknown]
  - Blood glucose increased [Recovering/Resolving]
  - Muscle spasms [Unknown]
  - Fatigue [Not Recovered/Not Resolved]
  - Injection site bruising [Unknown]
  - Influenza like illness [Unknown]
  - Back pain [Recovering/Resolving]
  - Arthralgia [Unknown]

NARRATIVE: CASE EVENT DATE: 20230101
